FAERS Safety Report 16684266 (Version 2)
Quarter: 2019Q3

REPORT INFORMATION
  Report Type: Report from Study
  Country: JP (occurrence: JP)
  Receive Date: 20190808
  Receipt Date: 20190912
  Transmission Date: 20191004
  Serious: Yes (Other)
  Sender: FDA-Public Use
  Company Number: JP-BAUSCH-BL-2019-022403

PATIENT
  Age: 66 Year
  Sex: Female
  Weight: 40.2 kg

DRUGS (15)
  1. ZALTRAP [Suspect]
     Active Substance: ZIV-AFLIBERCEPT
     Route: 041
     Dates: start: 20181116, end: 20181130
  2. IRINOTECAN [Suspect]
     Active Substance: IRINOTECAN
     Route: 065
     Dates: start: 201805, end: 201809
  3. FLUOROURACIL. [Suspect]
     Active Substance: FLUOROURACIL
     Indication: COLON CANCER
     Route: 065
     Dates: start: 201805, end: 201809
  4. ZALTRAP [Suspect]
     Active Substance: ZIV-AFLIBERCEPT
     Dosage: 1 TIME
     Route: 041
     Dates: start: 20190510, end: 20190510
  5. VALSARTAN. [Concomitant]
     Active Substance: VALSARTAN
     Indication: HYPERTENSION
     Dates: start: 20181214, end: 20190207
  6. FLUOROURACIL. [Suspect]
     Active Substance: FLUOROURACIL
     Dosage: DURATION: 1 MONTH 13 DAYS
     Route: 041
     Dates: start: 20181116, end: 20181228
  7. IRINOTECAN [Suspect]
     Active Substance: IRINOTECAN
     Route: 065
     Dates: start: 20190510, end: 20190621
  8. ZALTRAP [Suspect]
     Active Substance: ZIV-AFLIBERCEPT
     Indication: COLON CANCER
     Route: 041
     Dates: start: 20181228, end: 20190125
  9. ZALTRAP [Suspect]
     Active Substance: ZIV-AFLIBERCEPT
     Route: 041
     Dates: start: 20190607, end: 20190621
  10. OXALIPLATIN. [Suspect]
     Active Substance: OXALIPLATIN
     Indication: COLON CANCER
     Route: 065
     Dates: start: 201805, end: 201809
  11. AMLODIPINE (AMLODIPINE BESILATE) [Concomitant]
     Indication: HYPERTENSION
     Dates: start: 20181130
  12. IRINOTECAN [Suspect]
     Active Substance: IRINOTECAN
     Indication: COLON CANCER
     Route: 065
     Dates: start: 20181116, end: 20190419
  13. ZALTRAP [Suspect]
     Active Substance: ZIV-AFLIBERCEPT
     Route: 041
     Dates: start: 20190222, end: 20190419
  14. FLUOROURACIL. [Suspect]
     Active Substance: FLUOROURACIL
     Indication: COLON CANCER
     Dosage: DURATION: 1 MONTH 13 DAYS
     Route: 040
     Dates: start: 20181116, end: 20181228
  15. CALCIUM FOLINATE [Suspect]
     Active Substance: LEUCOVORIN CALCIUM
     Indication: COLON CANCER
     Route: 065
     Dates: start: 20181116, end: 20181228

REACTIONS (2)
  - Neuropathy peripheral [Not Recovered/Not Resolved]
  - Protein urine present [Recovering/Resolving]

NARRATIVE: CASE EVENT DATE: 20190111
